FAERS Safety Report 9178628 (Version 2)
Quarter: 2014Q3

REPORT INFORMATION
  Report Type: Spontaneous
  Country: US (occurrence: US)
  Receive Date: 20130321
  Receipt Date: 20140825
  Transmission Date: 20150326
  Serious: Yes (Death, Other)
  Sender: FDA-Public Use
  Company Number: US-009507513-2009SP024406

PATIENT
  Sex: Female
  Weight: 83.92 kg

DRUGS (1)
  1. NUVARING [Suspect]
     Active Substance: ETHINYL ESTRADIOL\ETONOGESTREL
     Indication: CONTRACEPTION
     Route: 067
     Dates: start: 20060126, end: 20070916

REACTIONS (8)
  - Respiratory arrest [Not Recovered/Not Resolved]
  - Hepatic steatosis [Unknown]
  - Arrhythmia [Fatal]
  - Cardiac failure [Fatal]
  - Pulmonary embolism [Unknown]
  - Acute pulmonary oedema [Unknown]
  - Pulmonary congestion [Unknown]
  - Chronic hepatitis [Unknown]

NARRATIVE: CASE EVENT DATE: 20070916
